FAERS Safety Report 4817350-7 (Version None)
Quarter: 2005Q4

REPORT INFORMATION
  Report Type: 
  Country: None (occurrence: None)
  Receive Date: 20051031
  Receipt Date: 20051024
  Transmission Date: 20060501
  Serious: Yes (Death, Life-Threatening, Hospitalization)
  Sender: FDA-Public Use
  Company Number: 2005-08-1193

PATIENT
  Age: 64 Year
  Sex: Female
  Weight: 71.2147 kg

DRUGS (5)
  1. INTRON A [Suspect]
     Indication: MALIGNANT MELANOMA
     Dosage: 34 MIU QD INTRAVENOUS
     Route: 042
     Dates: start: 20050711, end: 20050805
  2. ACTOS [Concomitant]
  3. LOTREL [Concomitant]
  4. HYDROCODONE [Concomitant]
  5. LOPID [Concomitant]

REACTIONS (8)
  - DEHYDRATION [None]
  - DIABETES MELLITUS INADEQUATE CONTROL [None]
  - LUNG INFECTION PSEUDOMONAL [None]
  - METABOLIC ACIDOSIS [None]
  - PNEUMONIA ASPIRATION [None]
  - SEPSIS [None]
  - SHOCK [None]
  - WOUND INFECTION STAPHYLOCOCCAL [None]
